FAERS Safety Report 11708853 (Version 1)
Quarter: 2015Q4

REPORT INFORMATION
  Report Type: Spontaneous
  Country: US (occurrence: US)
  Receive Date: 20151104
  Receipt Date: 20151104
  Transmission Date: 20160304
  Serious: No
  Sender: FDA-Public Use
  Company Number: US-ELI_LILLY_AND_COMPANY-US201108007674

PATIENT
  Age: 83 Year
  Sex: Male

DRUGS (5)
  1. FLOMAX [Concomitant]
     Active Substance: TAMSULOSIN HYDROCHLORIDE
  2. FORTEO [Suspect]
     Active Substance: TERIPARATIDE
     Dosage: UNK, UNKNOWN
  3. COUMADIN [Concomitant]
     Active Substance: WARFARIN SODIUM
  4. FORTEO [Suspect]
     Active Substance: TERIPARATIDE
     Indication: OSTEOPOROSIS
     Dosage: UNK, UNKNOWN
  5. HYDROCHLOROTHIAZIDE. [Concomitant]
     Active Substance: HYDROCHLOROTHIAZIDE

REACTIONS (7)
  - Malaise [Unknown]
  - Back injury [Unknown]
  - Clavicle fracture [Unknown]
  - Spinal fracture [Unknown]
  - Fall [Recovered/Resolved]
  - Rib fracture [Unknown]
  - Pain [Unknown]

NARRATIVE: CASE EVENT DATE: 20110809
